FAERS Safety Report 9551130 (Version 1)
Quarter: 2013Q3

REPORT INFORMATION
  Report Type: Report from Study
  Country: ES (occurrence: ES)
  Receive Date: 20130925
  Receipt Date: 20130925
  Transmission Date: 20140515
  Serious: Yes (Other)
  Sender: FDA-Public Use
  Company Number: ES-ROCHE-1278676

PATIENT
  Sex: 0

DRUGS (11)
  1. RITUXIMAB [Suspect]
     Indication: NON-HODGKIN^S LYMPHOMA
     Dosage: FOR SIX TO EIGHT CYCLES
     Route: 065
  2. RITUXIMAB [Suspect]
     Indication: LUPUS NEPHRITIS
     Dosage: 2 WEEKS APART OR 375 MG/M2 WEEKLY FOR 4 WEEKS
     Route: 042
  3. RITUXIMAB [Suspect]
     Indication: SYSTEMIC LUPUS ERYTHEMATOSUS
  4. RITUXIMAB [Suspect]
     Indication: CHRONIC LYMPHOCYTIC LEUKAEMIA
  5. RITUXIMAB [Suspect]
     Indication: IMMUNE THROMBOCYTOPENIC PURPURA
  6. RITUXIMAB [Suspect]
     Indication: GLOMERULONEPHRITIS MEMBRANOUS
  7. RITUXIMAB [Suspect]
     Indication: GLOMERULONEPHRITIS MEMBRANOPROLIFERATIVE
  8. RITUXIMAB [Suspect]
     Indication: NEUROMYELITIS OPTICA
  9. RITUXIMAB [Suspect]
     Indication: GLOMERULONEPHRITIS MINIMAL LESION
  10. RITUXIMAB [Suspect]
     Indication: THROMBOTIC THROMBOCYTOPENIC PURPURA
  11. RITUXIMAB [Suspect]
     Indication: OFF LABEL USE

REACTIONS (11)
  - Sepsis [Unknown]
  - Urinary tract infection [Unknown]
  - Gastrointestinal haemorrhage [Unknown]
  - Oedema [Unknown]
  - Mucosal inflammation [Unknown]
  - Nausea [Unknown]
  - Vomiting [Unknown]
  - Diarrhoea [Unknown]
  - Pyrexia [Unknown]
  - Constipation [Unknown]
  - Neutropenia [Unknown]
